FAERS Safety Report 7757786-8 (Version None)
Quarter: 2011Q3

REPORT INFORMATION
  Report Type: 
  Country: None (occurrence: None)
  Receive Date: 20110918
  Receipt Date: 20110907
  Transmission Date: 20111222
  Serious: Yes (Hospitalization)
  Sender: FDA-Public Use
  Company Number: US-CELGENEUS-163-20785-11050250

PATIENT
  Age: 88 Year
  Sex: Male
  Weight: 68 kg

DRUGS (8)
  1. THALOMID [Suspect]
     Dosage: 100 MILLIGRAM
     Route: 048
     Dates: start: 20110607
  2. PREDNISONE [Suspect]
     Indication: MULTIPLE MYELOMA
     Dosage: 100 MILLIGRAM
     Route: 048
     Dates: start: 20110325
  3. THALOMID [Suspect]
     Indication: MULTIPLE MYELOMA
     Dosage: 100 MILLIGRAM
     Route: 048
     Dates: start: 20110325, end: 20110421
  4. MELPHALAN HYDROCHLORIDE [Suspect]
     Indication: MULTIPLE MYELOMA
     Dosage: 9 MILLIGRAM/SQ. METER
     Route: 048
     Dates: start: 20110325
  5. MELPHALAN HYDROCHLORIDE [Suspect]
     Dosage: 9 MILLIGRAM/SQ. METER
     Route: 048
     Dates: start: 20110527
  6. PREDNISONE [Suspect]
     Dosage: 100 MILLIGRAM
     Route: 048
     Dates: start: 20110427, end: 20110429
  7. MELPHALAN HYDROCHLORIDE [Suspect]
     Dosage: 9 MILLIGRAM/SQ. METER
     Route: 048
     Dates: start: 20110427, end: 20110429
  8. ASPIRIN [Concomitant]
     Dosage: 325 MILLIGRAM
     Route: 048
     Dates: start: 20110325

REACTIONS (2)
  - MENINGITIS [None]
  - COGNITIVE DISORDER [None]
